FAERS Safety Report 5443734-2 (Version None)
Quarter: 2007Q3

REPORT INFORMATION
  Report Type: 
  Country: None (occurrence: None)
  Receive Date: 20070905
  Receipt Date: 20070824
  Transmission Date: 20080115
  Serious: Yes (Hospitalization, Other)
  Sender: FDA-Public Use
  Company Number: JP-PFIZER INC-2007071499

PATIENT
  Age: 84 Year
  Sex: Male

DRUGS (2)
  1. ALPRAZOLAM [Suspect]
     Route: 048
  2. ALL OTHER THERAPEUTIC PRODUCTS [Concomitant]

REACTIONS (3)
  - BLOOD PRESSURE DECREASED [None]
  - COMA [None]
  - SUICIDE ATTEMPT [None]
